FAERS Safety Report 4552525-6 (Version None)
Quarter: 2005Q1

REPORT INFORMATION
  Report Type: 
  Country: None (occurrence: None)
  Receive Date: 20050114
  Receipt Date: 20040716
  Transmission Date: 20050727
  Serious: No
  Sender: FDA-Public Use
  Company Number: US-GLAXOSMITHKLINE-A0518623A

PATIENT
  Age: 71 Year
  Sex: Female

DRUGS (3)
  1. IMITREX [Suspect]
     Indication: MIGRAINE
     Dosage: 1INJ AS REQUIRED
     Route: 058
     Dates: start: 20040715
  2. LEXAPRO [Concomitant]
  3. FOSAMAX [Concomitant]

REACTIONS (1)
  - INJECTION SITE PAIN [None]
